FAERS Safety Report 25711132 (Version 2)
Quarter: 2025Q3

REPORT INFORMATION
  Report Type: Spontaneous
  Country: US (occurrence: US)
  Receive Date: 20250821
  Receipt Date: 20250910
  Transmission Date: 20251021
  Serious: Yes (Hospitalization, Other)
  Sender: BAYER HEALTHCARE LLC
  Company Number: US-BAYER-2025A109801

PATIENT
  Sex: Male

DRUGS (2)
  1. MIRALAX [Suspect]
     Active Substance: POLYETHYLENE GLYCOL 3350
     Indication: Constipation
     Route: 048
     Dates: start: 202411
  2. MIRAFAST SOFT CHEWS [Suspect]
     Active Substance: MAGNESIUM HYDROXIDE

REACTIONS (8)
  - Intestinal obstruction [None]
  - Drug ineffective [Unknown]
  - Drug ineffective [Unknown]
  - Abdominal pain upper [None]
  - Back pain [None]
  - Headache [None]
  - Renal pain [None]
  - Abdominal pain [None]
